FAERS Safety Report 15745476 (Version 2)
Quarter: 2019Q1

REPORT INFORMATION
  Report Type: Report from Study
  Country: None (occurrence: US)
  Receive Date: 20181220
  Receipt Date: 20190119
  Transmission Date: 20190417
  Serious: Yes (Other)
  Sender: FDA-Public Use
  Company Number: US-ABBVIE-18K-163-2598675-00

PATIENT
  Age: 58 Year
  Sex: Male

DRUGS (1)
  1. HUMIRA [Suspect]
     Active Substance: ADALIMUMAB
     Indication: PSORIASIS
     Route: 058
     Dates: start: 2017

REACTIONS (5)
  - Gastric perforation [Not Recovered/Not Resolved]
  - Wrong technique in product usage process [Recovered/Resolved]
  - Device issue [Unknown]
  - Anger [Not Recovered/Not Resolved]
  - Catheter removal [Not Recovered/Not Resolved]

NARRATIVE: CASE EVENT DATE: 2018
